FAERS Safety Report 4492071-1 (Version None)
Quarter: 2004Q4

REPORT INFORMATION
  Report Type: 
  Country: None (occurrence: None)
  Receive Date: 20041103
  Receipt Date: 20040922
  Transmission Date: 20050328
  Serious: Yes (Hospitalization, Other)
  Sender: FDA-Public Use
  Company Number: PHBS2004JP12761

PATIENT
  Age: 67 Year
  Sex: Female
  Weight: 65 kg

DRUGS (2)
  1. DIOVAN [Suspect]
     Dosage: 80 MG, BID
     Route: 048
     Dates: start: 20040209, end: 20040211
  2. NIFEDIPINE [Suspect]
     Indication: HYPERTENSION
     Dosage: 20 MG, BID
     Route: 048
     Dates: start: 20040209, end: 20040211

REACTIONS (4)
  - CEREBRAL INFARCTION [None]
  - HEMIPARESIS [None]
  - MONOPLEGIA [None]
  - PARALYSIS [None]
